FAERS Safety Report 7059864-8 (Version None)
Quarter: 2010Q4

REPORT INFORMATION
  Report Type: 
  Country: None (occurrence: None)
  Receive Date: 20101025
  Receipt Date: 20101012
  Transmission Date: 20110411
  Serious: Yes (Other)
  Sender: FDA-Public Use
  Company Number: PHHY2010US68900

PATIENT
  Age: 74 Year
  Sex: Female

DRUGS (2)
  1. ELIDEL [Suspect]
     Route: 061
  2. PROXITIN [Concomitant]
     Dosage: 10 MG, UNK

REACTIONS (7)
  - APPLICATION SITE IRRITATION [None]
  - DRUG INEFFECTIVE [None]
  - ERYTHEMA [None]
  - HEARING IMPAIRED [None]
  - SCAB [None]
  - SKIN EXFOLIATION [None]
  - VISUAL IMPAIRMENT [None]
